FAERS Safety Report 18327321 (Version 1)
Quarter: 2020Q3

REPORT INFORMATION
  Report Type: Spontaneous
  Country: US (occurrence: US)
  Receive Date: 20200930
  Receipt Date: 20200930
  Transmission Date: 20201103
  Serious: No
  Sender: FDA-Public Use
  Company Number: US-AMGEN-USASP2020154774

PATIENT

DRUGS (4)
  1. IBRANCE [Suspect]
     Active Substance: PALBOCICLIB
     Indication: BREAST CANCER
     Dosage: 125 MILLIGRAM, QD
     Route: 048
     Dates: start: 201610
  2. IBRANCE [Suspect]
     Active Substance: PALBOCICLIB
     Dosage: 100 MILLIGRAM, Q3WK
     Route: 048
  3. XGEVA [Suspect]
     Active Substance: DENOSUMAB
     Indication: PRODUCT USED FOR UNKNOWN INDICATION
     Dosage: UNK
     Route: 065
  4. LETROZOLE. [Concomitant]
     Active Substance: LETROZOLE
     Dosage: UNK, QD
     Route: 065

REACTIONS (2)
  - Oral herpes [Unknown]
  - Bone pain [Unknown]
